FAERS Safety Report 22533934 (Version 1)
Quarter: 2023Q2

REPORT INFORMATION
  Report Type: Spontaneous
  Country: CA (occurrence: CA)
  Receive Date: 20230608
  Receipt Date: 20230608
  Transmission Date: 20230721
  Serious: Yes (Other)
  Sender: FDA-Public Use
  Company Number: CA-ADVANZ PHARMA-202305003490

PATIENT
  Age: 51 Year
  Sex: Male

DRUGS (3)
  1. OCALIVA [Suspect]
     Active Substance: OBETICHOLIC ACID
     Indication: Primary biliary cholangitis
     Dosage: 5 MG, QD (OCALIVA)
     Route: 048
     Dates: start: 20190510
  2. OCALIVA [Suspect]
     Active Substance: OBETICHOLIC ACID
     Dosage: 10 MG, QD
     Route: 048
  3. URSO [Concomitant]
     Active Substance: URSODIOL
     Dosage: 750 MG, BID
     Route: 048

REACTIONS (6)
  - Brain injury [Unknown]
  - Blood alkaline phosphatase increased [Recovering/Resolving]
  - Gamma-glutamyltransferase abnormal [Unknown]
  - Alanine aminotransferase abnormal [Unknown]
  - Blood bilirubin increased [Unknown]
  - Bilirubin conjugated abnormal [Unknown]

NARRATIVE: CASE EVENT DATE: 20211101
